FAERS Safety Report 8483210-6 (Version None)
Quarter: 2012Q3

REPORT INFORMATION
  Report Type: 
  Country: None (occurrence: None)
  Receive Date: 20120702
  Receipt Date: 20120621
  Transmission Date: 20120928
  Serious: Yes (Death, Hospitalization)
  Sender: FDA-Public Use
  Company Number: FR-VERTEX PHARMACEUTICALS INC.-000000000000000722

PATIENT
  Sex: Male

DRUGS (10)
  1. COPEGUS [Concomitant]
     Dates: start: 20120410
  2. LEPTICUR [Concomitant]
  3. PEGINTERFERON ALFA-2A [Concomitant]
     Indication: HEPATITIS C
     Dates: start: 20120120
  4. LANTUS [Concomitant]
  5. ASPIRIN [Concomitant]
  6. RISPERDAL [Concomitant]
  7. METFORMIN HCL [Concomitant]
  8. COPEGUS [Concomitant]
     Indication: HEPATITIS C
     Dates: start: 20120120, end: 20120410
  9. INCIVO [Suspect]
     Indication: HEPATITIS C
     Dosage: DOSAGE FORM: TABLET, 12 WEEKS COMPLETED
     Route: 048
     Dates: start: 20120120, end: 20120412
  10. GLIMEPIRIDE [Concomitant]

REACTIONS (2)
  - ANAEMIA [None]
  - DEATH [None]
